FAERS Safety Report 9954182 (Version 1)
Quarter: 2014Q1

REPORT INFORMATION
  Report Type: Report from Study
  Country: US (occurrence: US)
  Receive Date: 20140304
  Receipt Date: 20140304
  Transmission Date: 20141002
  Serious: No
  Sender: FDA-Public Use
  Company Number: US-ABBVIE-13P-163-1078824-00

PATIENT
  Age: 41 Year
  Sex: Female

DRUGS (3)
  1. HUMIRA [Suspect]
     Indication: CROHN^S DISEASE
     Dates: start: 20130118
  2. ASACOL [Concomitant]
     Indication: CROHN^S DISEASE
     Route: 048
  3. PEPCID [Concomitant]
     Indication: ABDOMINAL DISCOMFORT
     Route: 048

REACTIONS (5)
  - Incorrect route of drug administration [Not Recovered/Not Resolved]
  - Pyrexia [Not Recovered/Not Resolved]
  - Injection site haemorrhage [Not Recovered/Not Resolved]
  - Injection site mass [Not Recovered/Not Resolved]
  - Crohn^s disease [Not Recovered/Not Resolved]
